FAERS Safety Report 13225873 (Version 1)
Quarter: 2017Q1

REPORT INFORMATION
  Report Type: Spontaneous
  Country: US (occurrence: US)
  Receive Date: 20170213
  Receipt Date: 20170213
  Transmission Date: 20170428
  Serious: No
  Sender: FDA-Public Use
  Company Number: US-TEVA-731309USA

PATIENT
  Age: 79 Year
  Sex: Male
  Weight: 106.69 kg

DRUGS (1)
  1. PROAIR HFA [Suspect]
     Active Substance: ALBUTEROL SULFATE
     Indication: COUGH
     Dates: start: 201612

REACTIONS (5)
  - Movement disorder [Unknown]
  - Peripheral swelling [Unknown]
  - Secretion discharge [Unknown]
  - Pain in extremity [Unknown]
  - Cough [Unknown]

NARRATIVE: CASE EVENT DATE: 20161201
